FAERS Safety Report 13531595 (Version 1)
Quarter: 2017Q2

REPORT INFORMATION
  Report Type: Spontaneous
  Country: US (occurrence: US)
  Receive Date: 20170509
  Receipt Date: 20170509
  Transmission Date: 20170830
  Serious: Yes (Hospitalization)
  Sender: FDA-Public Use
  Company Number: None

PATIENT
  Age: 57 Year
  Sex: Male

DRUGS (1)
  1. OPSUMIT [Suspect]
     Active Substance: MACITENTAN
     Indication: PULMONARY EMBOLISM
     Route: 048
     Dates: start: 20161111

REACTIONS (4)
  - Condition aggravated [None]
  - Acute respiratory failure [None]
  - Ascites [None]
  - Cardiac failure congestive [None]

NARRATIVE: CASE EVENT DATE: 20170504
